FAERS Safety Report 13739013 (Version 2)
Quarter: 2018Q2

REPORT INFORMATION
  Report Type: Report from Study
  Country: US (occurrence: US)
  Receive Date: 20170710
  Receipt Date: 20180627
  Transmission Date: 20180711
  Serious: Yes (Hospitalization, Other)
  Sender: FDA-Public Use
  Company Number: US-SAOL THERAPEUTICS-2017SAO00729

PATIENT
  Age: 19 Year
  Sex: Male
  Weight: 28 kg

DRUGS (6)
  1. LIORESAL [Suspect]
     Active Substance: BACLOFEN
     Dosage: 950.5 ?G, \DAY
     Route: 037
     Dates: start: 20170630, end: 20110329
  2. LIORESAL [Suspect]
     Active Substance: BACLOFEN
     Dosage: 1000 ?G, \DAY
     Route: 037
  3. LIORESAL [Suspect]
     Active Substance: BACLOFEN
     Dosage: 999.6 ?G, \DAY
     Route: 037
     Dates: start: 20171115, end: 20110329
  4. LIORESAL [Suspect]
     Active Substance: BACLOFEN
     Dosage: 1050.1 ?G, \DAY
     Route: 037
     Dates: start: 20170124
  5. LIORESAL [Suspect]
     Active Substance: BACLOFEN
     Indication: CEREBRAL PALSY
     Dosage: 660.6 ?G, \DAY
     Route: 037
     Dates: start: 20110209, end: 20110329
  6. LIORESAL [Suspect]
     Active Substance: BACLOFEN
     Indication: MUSCLE SPASTICITY
     Dosage: 727.1 ?G, \DAY
     Route: 037
     Dates: start: 20110329

REACTIONS (10)
  - Musculoskeletal stiffness [Recovering/Resolving]
  - Pain [Unknown]
  - Implant site extravasation [Recovered/Resolved]
  - Device occlusion [Unknown]
  - Drug withdrawal syndrome [Recovered/Resolved]
  - Insomnia [Recovered/Resolved]
  - Complication associated with device [Recovered/Resolved]
  - Agitation [Recovering/Resolving]
  - Hypertonia [Recovered/Resolved]
  - Urinary tract infection [Recovered/Resolved]

NARRATIVE: CASE EVENT DATE: 201704
